FAERS Safety Report 24970064 (Version 1)
Quarter: 2025Q1

REPORT INFORMATION
  Report Type: Spontaneous
  Country: IE (occurrence: IE)
  Receive Date: 20250214
  Receipt Date: 20250214
  Transmission Date: 20250409
  Serious: Yes (Other)
  Sender: JOHNSON AND JOHNSON
  Company Number: IE-ABBVIE-6131700

PATIENT
  Age: 43 Year
  Sex: Female

DRUGS (4)
  1. IBRUTINIB [Suspect]
     Active Substance: IBRUTINIB
     Indication: Product used for unknown indication
     Route: 048
     Dates: start: 201707
  2. VENETOCLAX [Suspect]
     Active Substance: VENETOCLAX
     Indication: Chronic lymphocytic leukaemia
     Route: 048
     Dates: start: 201812
  3. VENETOCLAX [Suspect]
     Active Substance: VENETOCLAX
     Indication: B-cell small lymphocytic lymphoma
  4. VENETOCLAX [Suspect]
     Active Substance: VENETOCLAX
     Indication: Lymphadenopathy

REACTIONS (3)
  - Myelosuppression [Unknown]
  - Graft versus host disease in skin [Unknown]
  - Thrombocytopenia [Unknown]
